FAERS Safety Report 11615253 (Version 5)
Quarter: 2016Q1

REPORT INFORMATION
  Report Type: Spontaneous
  Country: US (occurrence: US)
  Receive Date: 20151009
  Receipt Date: 20160105
  Transmission Date: 20160525
  Serious: Yes (Hospitalization, Other)
  Sender: FDA-Public Use
  Company Number: US-PFIZER INC-2015337022

PATIENT
  Age: 79 Year
  Sex: Male
  Weight: 81 kg

DRUGS (17)
  1. VITAMIN D3 [Concomitant]
     Active Substance: CHOLECALCIFEROL
     Dosage: 2000 IU, UNK
  2. NAMENDA XR [Concomitant]
     Active Substance: MEMANTINE HYDROCHLORIDE
     Indication: DEMENTIA ALZHEIMER^S TYPE
     Dosage: 28 MG, 1X/DAY
     Dates: start: 201211
  3. TOVIAZ [Suspect]
     Active Substance: FESOTERODINE FUMARATE
     Indication: POLLAKIURIA
     Dosage: UNK (VIALS)
  4. DOCUSATE SODIUM. [Concomitant]
     Active Substance: DOCUSATE SODIUM
     Indication: FAECES HARD
     Dosage: 100 MG 2 TABLET, TWICE A DAY
     Dates: start: 2014
  5. MAGNESIUM CITRATE. [Concomitant]
     Active Substance: MAGNESIUM CITRATE
     Indication: CONSTIPATION
     Dosage: UNK (TOOK 1/2 BOTTLE)
     Dates: start: 20150902
  6. CEFUROXIME. [Concomitant]
     Active Substance: CEFUROXIME
     Dosage: 500 MG, 2X/DAY
     Dates: start: 20150905
  7. DONEPEZIL. [Concomitant]
     Active Substance: DONEPEZIL
     Indication: DEMENTIA ALZHEIMER^S TYPE
     Dosage: 23 MG, 1X/DAY
     Dates: start: 201205
  8. POTASSIUM [Concomitant]
     Active Substance: POTASSIUM
     Dosage: 3 PILLS
  9. TOVIAZ [Suspect]
     Active Substance: FESOTERODINE FUMARATE
     Indication: BLADDER SPASM
     Dosage: 8 MG, 1X/DAY
     Route: 048
     Dates: start: 20150806, end: 20150807
  10. FIBER [Concomitant]
     Active Substance: PSYLLIUM HUSK
     Dosage: 3 DF, 2X/DAY
     Dates: start: 2014
  11. NITROFURANTOIN. [Concomitant]
     Active Substance: NITROFURANTOIN
     Dosage: 100 MG, 4X/DAY
     Dates: start: 20150826, end: 20150829
  12. MIRALAX [Concomitant]
     Active Substance: POLYETHYLENE GLYCOL 3350
     Indication: LAXATIVE SUPPORTIVE CARE
     Dosage: 1 CAPSULE
     Dates: start: 201509
  13. CITALOPRAM [Concomitant]
     Active Substance: CITALOPRAM HYDROBROMIDE
     Indication: ANTIDEPRESSANT THERAPY
     Dosage: 20 MG, 1X/DAY
     Dates: start: 201308
  14. ALIGN PROBIOTIC [Concomitant]
     Dosage: 1 DF, 2X/DAY
     Dates: start: 201509
  15. CALCIUM [Concomitant]
     Active Substance: CALCIUM
     Dosage: 600 MG, UNK
  16. VITAMIN C [Concomitant]
     Active Substance: ASCORBIC ACID
     Dosage: 100 MG, UNK
  17. ALEVE [Concomitant]
     Active Substance: NAPROXEN SODIUM
     Dosage: 220 MG, UNK
     Dates: start: 2014, end: 20151120

REACTIONS (18)
  - Urinary tract infection [Recovered/Resolved]
  - Gait disturbance [Not Recovered/Not Resolved]
  - Cognitive disorder [Unknown]
  - Blood sodium decreased [Unknown]
  - Vomiting [Recovered/Resolved]
  - Gastrointestinal disorder [Not Recovered/Not Resolved]
  - Somnolence [Unknown]
  - Memory impairment [Unknown]
  - Fatigue [Not Recovered/Not Resolved]
  - Muscular weakness [Recovered/Resolved]
  - Thrombosis [Unknown]
  - Hypersomnia [Not Recovered/Not Resolved]
  - Drug ineffective for unapproved indication [Unknown]
  - Confusional state [Unknown]
  - Urinary retention [Not Recovered/Not Resolved]
  - Diarrhoea [Not Recovered/Not Resolved]
  - Fall [Recovered/Resolved]
  - Hepatic enzyme increased [Unknown]

NARRATIVE: CASE EVENT DATE: 20150806
